FAERS Safety Report 9900672 (Version 1)
Quarter: 2014Q1

REPORT INFORMATION
  Report Type: Spontaneous
  Country: CN (occurrence: CN)
  Receive Date: 20140217
  Receipt Date: 20140217
  Transmission Date: 20141002
  Serious: Yes (Death, Other)
  Sender: FDA-Public Use
  Company Number: CN-ROCHE-1348526

PATIENT
  Age: 5 Year
  Sex: Female

DRUGS (3)
  1. CEFTRIAXONE SODIUM [Suspect]
     Indication: PYREXIA
     Route: 041
     Dates: start: 20140208
  2. GLUCOSE [Suspect]
     Indication: PYREXIA
     Route: 041
     Dates: start: 20140208
  3. DEXAMETHASONE [Suspect]
     Indication: PYREXIA
     Route: 041
     Dates: start: 20140208

REACTIONS (4)
  - Vomiting [Fatal]
  - Respiratory failure [Fatal]
  - Circulatory collapse [Fatal]
  - Anaphylactic shock [Unknown]
